FAERS Safety Report 4421175-4 (Version None)
Quarter: 2004Q3

REPORT INFORMATION
  Report Type: 
  Country: None (occurrence: None)
  Receive Date: 20040804
  Receipt Date: 20040722
  Transmission Date: 20050211
  Serious: Yes (Hospitalization)
  Sender: FDA-Public Use
  Company Number: FR-JNJFOC-20040706080

PATIENT
  Age: 71 Year
  Sex: Female

DRUGS (3)
  1. TRAMADOL HCL [Suspect]
     Indication: NECK PAIN
     Dosage: 2 IU, 1 IN 1 DAY, ORAL
     Route: 048
     Dates: start: 20040322, end: 20040325
  2. GLYBURIDE [Suspect]
     Indication: DIABETES MELLITUS
     Dosage: 7.5 MG, 1 IN 1 DAY, ORAL
     Route: 048
  3. FENOFIBRATE [Suspect]
     Indication: HYPERCHOLESTEROLAEMIA
     Dosage: 1 IU, 1 IN 1 DAY, ORAL
     Route: 048
     Dates: end: 20040424

REACTIONS (8)
  - CHOLESTASIS [None]
  - DRUG INTERACTION [None]
  - FALL [None]
  - HEPATOCELLULAR DAMAGE [None]
  - HYPOTONIA [None]
  - LOSS OF CONSCIOUSNESS [None]
  - MALAISE [None]
  - VERTIGO [None]
